FAERS Safety Report 20922879 (Version 1)
Quarter: 2022Q2

REPORT INFORMATION
  Report Type: Other
  Country: US (occurrence: None)
  Receive Date: 20220607
  Receipt Date: 20220607
  Transmission Date: 20220720
  Serious: Yes (Other)
  Sender: FDA-Public Use
  Company Number: US-ROCHE-2854910

PATIENT
  Sex: Female
  Weight: 98.972 kg

DRUGS (3)
  1. ACTEMRA [Suspect]
     Active Substance: TOCILIZUMAB
     Indication: Giant cell arteritis
     Route: 058
     Dates: start: 2019
  2. PREDNISONE [Concomitant]
     Active Substance: PREDNISONE
     Indication: Giant cell arteritis
     Dosage: YES
  3. FENTANYL [Concomitant]
     Active Substance: FENTANYL
     Dates: start: 2017

REACTIONS (5)
  - Amnesia [Not Recovered/Not Resolved]
  - Thrombosis [Not Recovered/Not Resolved]
  - Burning sensation [Unknown]
  - Deep vein thrombosis [Unknown]
  - Weight increased [Unknown]

NARRATIVE: CASE EVENT DATE: 20190101
